FAERS Safety Report 10586889 (Version 1)
Quarter: 2014Q4

REPORT INFORMATION
  Report Type: Spontaneous
  Country: US (occurrence: None)
  Receive Date: 20141114
  Receipt Date: 20141114
  Transmission Date: 20150529
  Serious: No
  Sender: FDA-Public Use
  Company Number: None

PATIENT
  Age: 66 Year
  Sex: Female
  Weight: 58.06 kg

DRUGS (1)
  1. AZITHROMYCIN [Suspect]
     Active Substance: AZITHROMYCIN ANHYDROUS
     Indication: SINUSITIS
     Dosage: 250 MG, ONCE DAILY
     Dates: start: 20141104, end: 20141106

REACTIONS (8)
  - Night sweats [None]
  - Palpitations [None]
  - Dyspnoea [None]
  - Constipation [None]
  - Tremor [None]
  - Dizziness [None]
  - Nightmare [None]
  - Decreased appetite [None]

NARRATIVE: CASE EVENT DATE: 20141103
